FAERS Safety Report 9829877 (Version 2)
Quarter: 2014Q1

REPORT INFORMATION
  Report Type: Spontaneous
  Country: PT (occurrence: PT)
  Receive Date: 20140120
  Receipt Date: 20140303
  Transmission Date: 20141002
  Serious: Yes (Life-Threatening, Hospitalization, Other)
  Sender: FDA-Public Use
  Company Number: PT-SA-2014SA005389

PATIENT
  Age: 28 Month
  Sex: Female
  Weight: 9 kg

DRUGS (1)
  1. MYOZYME [Suspect]
     Indication: GLYCOGEN STORAGE DISEASE TYPE II
     Route: 042
     Dates: start: 20111108, end: 20130924

REACTIONS (12)
  - Cardio-respiratory arrest [Recovered/Resolved with Sequelae]
  - Respiratory failure [Unknown]
  - Pneumonia [Unknown]
  - Central nervous system lesion [Unknown]
  - Convulsion [Unknown]
  - Unresponsive to stimuli [Unknown]
  - General physical health deterioration [Unknown]
  - Infection [Unknown]
  - Nervous system disorder [Unknown]
  - Hypotonia [Unknown]
  - Decreased eye contact [Unknown]
  - Drug ineffective [Unknown]
